FAERS Safety Report 8397223-6 (Version None)
Quarter: 2012Q2

REPORT INFORMATION
  Report Type: 
  Country: None (occurrence: None)
  Receive Date: 20120530
  Receipt Date: 20120515
  Transmission Date: 20120825
  Serious: Yes (Other)
  Sender: FDA-Public Use
  Company Number: CHPA2012US011088

PATIENT
  Age: 41 Year
  Sex: Male
  Weight: 215.42 kg

DRUGS (3)
  1. LAMISIL AT [Suspect]
     Indication: INFECTION PROPHYLAXIS
     Dosage: UNK, UNK
     Route: 061
  2. LAMISIL AT [Suspect]
     Indication: INFECTION PROPHYLAXIS
     Dosage: UNK, UNK
     Route: 061
  3. OXYGEN [Concomitant]
     Indication: LUNG DISORDER
     Dosage: UNK, UNK

REACTIONS (4)
  - OFF LABEL USE [None]
  - INCORRECT DRUG ADMINISTRATION DURATION [None]
  - UPPER RESPIRATORY TRACT INFECTION [None]
  - DRUG ADMINISTRATION ERROR [None]
